FAERS Safety Report 9369978 (Version 1)
Quarter: 2013Q2

REPORT INFORMATION
  Report Type: Spontaneous
  Country: PT (occurrence: PT)
  Receive Date: 20130626
  Receipt Date: 20130626
  Transmission Date: 20140414
  Serious: Yes (Hospitalization)
  Sender: FDA-Public Use
  Company Number: PT-ABBOTT-13X-130-1107768-00

PATIENT
  Sex: Male

DRUGS (1)
  1. KLACID OD [Suspect]
     Indication: TOOTH DISORDER
     Route: 048
     Dates: start: 2013, end: 2013

REACTIONS (1)
  - Liver disorder [Recovered/Resolved]
